FAERS Safety Report 6634504-8 (Version None)
Quarter: 2010Q1

REPORT INFORMATION
  Report Type: 
  Country: None (occurrence: None)
  Receive Date: 20100315
  Receipt Date: 20100309
  Transmission Date: 20100710
  Serious: Yes (Hospitalization, Other)
  Sender: FDA-Public Use
  Company Number: US-ROCHE-690244

PATIENT
  Sex: Male
  Weight: 79.4 kg

DRUGS (22)
  1. VALCYTE [Suspect]
     Indication: LUNG TRANSPLANT
     Route: 065
  2. CELLCEPT [Suspect]
     Indication: LUNG TRANSPLANT
     Route: 048
  3. CELLCEPT [Suspect]
     Route: 048
  4. CELLCEPT [Suspect]
     Route: 048
  5. CELLCEPT [Suspect]
     Route: 048
  6. BACTRIM [Concomitant]
  7. LOPRESSOR [Concomitant]
  8. PRINIVIL [Concomitant]
  9. ALLOPURINOL [Concomitant]
  10. ASPIRIN [Concomitant]
  11. BRIMONIDINE [Concomitant]
  12. COLCHICINE [Concomitant]
  13. DORZOLAMIDE [Concomitant]
  14. FLECAINIDE [Concomitant]
  15. MAGNESIUM SULFATE [Concomitant]
  16. PRILOSEC [Concomitant]
  17. PREDNISONE [Concomitant]
  18. PROGRAF [Concomitant]
  19. VFEND [Concomitant]
  20. AMBIEN [Concomitant]
  21. DOXYCYCLINE HYCLATE [Concomitant]
  22. VIBRA-TABS [Concomitant]

REACTIONS (2)
  - ASPERGILLOSIS [None]
  - SKIN CANCER [None]
